FAERS Safety Report 23525453 (Version 2)
Quarter: 2024Q3

REPORT INFORMATION
  Report Type: Spontaneous
  Country: CZ (occurrence: CZ)
  Receive Date: 20240215
  Receipt Date: 20240710
  Transmission Date: 20241016
  Serious: Yes (Hospitalization, Other)
  Sender: ACCORD
  Company Number: None

PATIENT
  Age: 18 Year
  Sex: Female

DRUGS (2)
  1. QUETIAPINE [Interacting]
     Active Substance: QUETIAPINE
     Indication: Autism spectrum disorder
     Dosage: LONG-TERM, STABILIZED FOR 18 MONTHS (WITHOUT COMPLIACTIONS)
  2. CLINDAMYCIN [Interacting]
     Active Substance: CLINDAMYCIN
     Indication: Toothache

REACTIONS (5)
  - Delusion [Unknown]
  - Irritability [Unknown]
  - Insomnia [Unknown]
  - Psychotic disorder [Unknown]
  - Drug interaction [Unknown]

NARRATIVE: CASE EVENT DATE: 20240101
